FAERS Safety Report 7586534-X (Version None)
Quarter: 2011Q3

REPORT INFORMATION
  Report Type: 
  Country: None (occurrence: None)
  Receive Date: 20110701
  Receipt Date: 20110627
  Transmission Date: 20111222
  Serious: Yes (Life-Threatening)
  Sender: FDA-Public Use
  Company Number: IT-ROCHE-786182

PATIENT

DRUGS (4)
  1. BEVACIZUMAB [Suspect]
     Dosage: DOSE:340, UNIT: UNKNOWN
     Route: 042
     Dates: start: 20110119, end: 20110119
  2. IRINOTECAN HYDROCHLORIDE [Concomitant]
     Dosage: DOSE: 288, UNIT: UNKNOWN
     Route: 042
     Dates: start: 20110119, end: 20110119
  3. FLUOROURACIL [Concomitant]
     Dosage: DOSE: 3200, UNIT: UNKNOWN
     Route: 042
     Dates: start: 20110119, end: 20110119
  4. LEUCOVORIN CALCIUM [Concomitant]
     Dosage: DOSE: 320, UNIT: UNKNOWN
     Route: 042
     Dates: start: 20110119, end: 20110119

REACTIONS (2)
  - MUSCLE RIGIDITY [None]
  - PARAESTHESIA [None]
